APPROVED DRUG PRODUCT: AKPRO
Active Ingredient: DIPIVEFRIN HYDROCHLORIDE
Strength: 0.1%
Dosage Form/Route: SOLUTION/DROPS;OPHTHALMIC
Application: A074382 | Product #001
Applicant: EPIC PHARMA LLC
Approved: Sep 29, 1995 | RLD: No | RS: No | Type: DISCN